FAERS Safety Report 22183438 (Version 2)
Quarter: 2023Q2

REPORT INFORMATION
  Report Type: Spontaneous
  Country: US (occurrence: US)
  Receive Date: 20230406
  Receipt Date: 20230425
  Transmission Date: 20230722
  Serious: No
  Sender: FDA-Public Use
  Company Number: US-ALLERGAN-2307676US

PATIENT
  Sex: Female

DRUGS (2)
  1. QULIPTA [Interacting]
     Active Substance: ATOGEPANT
     Indication: Product used for unknown indication
     Dosage: 60 MG, QD
     Route: 048
     Dates: start: 20230307, end: 20230307
  2. UNSPECIFIED INGREDIENT [Interacting]
     Active Substance: UNSPECIFIED INGREDIENT
     Indication: Product used for unknown indication

REACTIONS (2)
  - Hallucination, visual [Recovered/Resolved]
  - Drug interaction [Unknown]

NARRATIVE: CASE EVENT DATE: 20230307
